FAERS Safety Report 17251021 (Version 1)
Quarter: 2019Q4

REPORT INFORMATION
  Report Type: Spontaneous
  Country: US (occurrence: US)
  Receive Date: 20191214
  Receipt Date: 20191214
  Transmission Date: 20200122
  Serious: No
  Sender: FDA-Public Use
  Company Number: None

PATIENT
  Age: 67 Year
  Sex: Female

DRUGS (1)
  1. PROLIA [Suspect]
     Active Substance: DENOSUMAB
     Dosage: OTHER FREQUENCY: 60MG EVERY 6 MONTHS
     Route: 058
     Dates: start: 201906, end: 201906

REACTIONS (3)
  - Pain in extremity [None]
  - Malaise [None]
  - Arthralgia [None]

NARRATIVE: CASE EVENT DATE: 20190624
